FAERS Safety Report 15581049 (Version 7)
Quarter: 2019Q1

REPORT INFORMATION
  Report Type: Spontaneous
  Country: IT (occurrence: IT)
  Receive Date: 20181102
  Receipt Date: 20190213
  Transmission Date: 20190417
  Serious: Yes (Death)
  Sender: FDA-Public Use
  Company Number: IT-BIOGEN-2018BI00653224

PATIENT
  Age: 4 Year
  Sex: Female

DRUGS (6)
  1. NUROFEN [Concomitant]
     Active Substance: IBUPROFEN
     Indication: PRODUCT USED FOR UNKNOWN INDICATION
     Route: 065
     Dates: start: 20181019, end: 20181019
  2. SPINRAZA [Suspect]
     Active Substance: NUSINERSEN
     Indication: SPINAL MUSCULAR ATROPHY
     Route: 065
     Dates: start: 20161221, end: 20180713
  3. BEXSERO [Suspect]
     Active Substance: MENINGOCOCCAL GROUP B VACCINE
     Indication: INFECTION PROPHYLAXIS
     Dosage: 1 DOSAGE FORM
     Route: 065
     Dates: start: 20181019, end: 20181019
  4. TACHIPIRINA [Concomitant]
     Active Substance: ACETAMINOPHEN
     Indication: PRODUCT USED FOR UNKNOWN INDICATION
     Route: 065
     Dates: start: 20181019, end: 20181019
  5. SPINRAZA [Suspect]
     Active Substance: NUSINERSEN
     Route: 037
     Dates: start: 20170113, end: 20180713
  6. MENINGOCOCCAL GROUP B VACCINE [Concomitant]
     Active Substance: MENINGOCOCCAL GROUP B VACCINE
     Indication: PRODUCT USED FOR UNKNOWN INDICATION
     Route: 065
     Dates: start: 20181019, end: 20181019

REACTIONS (4)
  - Sepsis [Fatal]
  - Cardiac arrest [Fatal]
  - Pyrexia [Fatal]
  - Sopor [Fatal]

NARRATIVE: CASE EVENT DATE: 20181019
